FAERS Safety Report 20100305 (Version 4)
Quarter: 2022Q2

REPORT INFORMATION
  Report Type: Spontaneous
  Country: JP (occurrence: JP)
  Receive Date: 20211123
  Receipt Date: 20220408
  Transmission Date: 20220721
  Serious: Yes (Other)
  Sender: FDA-Public Use
  Company Number: JP-ONO-2021JP029404

PATIENT
  Age: 70 Year
  Sex: Male
  Weight: 52.8 kg

DRUGS (3)
  1. OPDIVO [Suspect]
     Active Substance: NIVOLUMAB
     Indication: Gastric cancer
     Dosage: 240 MG, Q2W
     Route: 041
     Dates: start: 20211007, end: 20211007
  2. FUROSEMIDE [Concomitant]
     Active Substance: FUROSEMIDE
     Dosage: 20 MG, Q12H
     Route: 048
     Dates: start: 20210422
  3. SAMSCA [Concomitant]
     Active Substance: TOLVAPTAN
     Indication: Ascites
     Dosage: 7.5 MG, EVERYDAY
     Route: 048
     Dates: start: 20210930

REACTIONS (2)
  - Type 1 diabetes mellitus [Recovered/Resolved]
  - Thyroiditis [Recovering/Resolving]

NARRATIVE: CASE EVENT DATE: 20211021
